FAERS Safety Report 9452306 (Version 6)
Quarter: 2016Q1

REPORT INFORMATION
  Report Type: Report from Study
  Country: BR (occurrence: BR)
  Receive Date: 20130812
  Receipt Date: 20160127
  Transmission Date: 20160526
  Serious: Yes (Hospitalization, Other)
  Sender: FDA-Public Use
  Company Number: BR-ROCHE-1259816

PATIENT
  Sex: Male
  Weight: 60.9 kg

DRUGS (10)
  1. CREON [Concomitant]
     Active Substance: PANCRELIPASE AMYLASE\PANCRELIPASE LIPASE\PANCRELIPASE PROTEASE
     Route: 065
  2. ATROVENT [Concomitant]
     Active Substance: IPRATROPIUM BROMIDE
  3. URSACOL [Concomitant]
     Active Substance: URSODIOL
     Route: 065
  4. SINGULAIR [Concomitant]
     Active Substance: MONTELUKAST SODIUM
     Route: 065
  5. AEROLIN [Concomitant]
     Active Substance: ALBUTEROL
  6. TOBI [Concomitant]
     Active Substance: TOBRAMYCIN
  7. SODIUM CHLORIDE. [Concomitant]
     Active Substance: SODIUM CHLORIDE
     Route: 065
  8. PULMOZYME [Suspect]
     Active Substance: DORNASE ALFA
     Indication: CYSTIC FIBROSIS
     Dosage: 3 NEBULIZATIONS PER DAY
     Route: 055
  9. OMEPRAZOLE. [Concomitant]
     Active Substance: OMEPRAZOLE
     Route: 048
  10. CHOLESTIN [Concomitant]

REACTIONS (8)
  - Pyrexia [Unknown]
  - Secretion discharge [Unknown]
  - Decreased appetite [Recovering/Resolving]
  - Thrombosis [Recovering/Resolving]
  - Weight decreased [Recovering/Resolving]
  - Fatigue [Recovering/Resolving]
  - Depression [Recovering/Resolving]
  - Dyspnoea [Recovering/Resolving]
